FAERS Safety Report 5014369-0 (Version None)
Quarter: 2006Q2

REPORT INFORMATION
  Report Type: 
  Country: None (occurrence: None)
  Receive Date: 20060525
  Receipt Date: 20060504
  Transmission Date: 20061013
  Serious: Yes (Other)
  Sender: FDA-Public Use
  Company Number: FR200605002123

PATIENT
  Sex: Male

DRUGS (2)
  1. CIALIS [Suspect]
  2. TARKA [Concomitant]

REACTIONS (2)
  - CHROMATOPSIA [None]
  - VISION BLURRED [None]
